FAERS Safety Report 17619000 (Version 1)
Quarter: 2020Q2

REPORT INFORMATION
  Report Type: Spontaneous
  Country: ES (occurrence: ES)
  Receive Date: 20200402
  Receipt Date: 20200402
  Transmission Date: 20200713
  Serious: Yes (Hospitalization, Other)
  Sender: FDA-Public Use
  Company Number: ES-GLAXOSMITHKLINE-ES2020GSK057809

PATIENT
  Age: 24 Year
  Sex: Female

DRUGS (1)
  1. MALARONE [Suspect]
     Active Substance: ATOVAQUONE\PROGUANIL HYDROCHLORIDE
     Indication: MALARIA PROPHYLAXIS
     Dosage: UNK

REACTIONS (12)
  - Headache [Recovered/Resolved]
  - Condition aggravated [Recovered/Resolved]
  - Leukocytosis [Recovered/Resolved]
  - Eosinophilia [Recovered/Resolved]
  - C-reactive protein increased [Recovered/Resolved]
  - Acute generalised exanthematous pustulosis [Recovered/Resolved]
  - Skin lesion [Recovered/Resolved]
  - Neutrophilic dermatosis [Recovered/Resolved]
  - Pustule [Recovered/Resolved]
  - Pyrexia [Recovered/Resolved]
  - Malaise [Recovered/Resolved]
  - Rash [Recovered/Resolved]
